FAERS Safety Report 10153141 (Version 2)
Quarter: 2014Q2

REPORT INFORMATION
  Report Type: Spontaneous
  Country: IT (occurrence: IT)
  Receive Date: 20140505
  Receipt Date: 20140507
  Transmission Date: 20141212
  Serious: Yes (Death)
  Sender: FDA-Public Use
  Company Number: IT-FRI-1000067046

PATIENT
  Age: 80 Year
  Sex: Male
  Weight: 91 kg

DRUGS (7)
  1. NEBIVOLOL [Suspect]
     Indication: CARDIAC FAILURE
     Dosage: 10 MG
     Route: 048
     Dates: start: 20040715
  2. CRESTOR [Concomitant]
     Route: 048
  3. CARDIRENE [Concomitant]
     Route: 048
  4. METFORMIN [Concomitant]
     Route: 048
  5. TICLOPIDINE [Concomitant]
     Route: 048
  6. LISINOPRIL [Concomitant]
     Route: 048
  7. NITROGLICERINE [Concomitant]
     Route: 062

REACTIONS (3)
  - Atrial fibrillation [Fatal]
  - Sinus bradycardia [Fatal]
  - Overdose [Fatal]
